FAERS Safety Report 10102143 (Version 2)
Quarter: 2014Q2

REPORT INFORMATION
  Report Type: Spontaneous
  Country: PT (occurrence: PT)
  Receive Date: 20140424
  Receipt Date: 20140424
  Transmission Date: 20141212
  Serious: Yes (Other)
  Sender: FDA-Public Use
  Company Number: PHHY2011PT78442

PATIENT
  Age: 35 Year
  Sex: Female

DRUGS (7)
  1. RASILEZ [Suspect]
     Dosage: UNK UKN, UNK
  2. SIMVASTATIN [Suspect]
     Dosage: UNK UKN, UNK
     Dates: end: 20110627
  3. INSULIN [Concomitant]
     Dosage: 34 IU/DAY
     Dates: start: 20110622
  4. INSULIN [Concomitant]
     Dosage: 40.9 U/DAY
     Dates: start: 20110627
  5. ATORVASTATIN [Concomitant]
     Dosage: UNK UKN, UNK
  6. ALFAMETILDOPA [Concomitant]
     Dosage: UNK UKN, UNK
     Dates: start: 20110627
  7. YASMIN [Concomitant]
     Dosage: UNK UKN, UNK

REACTIONS (5)
  - Coronary artery disease [Unknown]
  - Vascular occlusion [Unknown]
  - Premature delivery [Unknown]
  - Metabolic disorder [Unknown]
  - Exposure during pregnancy [Unknown]
